FAERS Safety Report 15480058 (Version 2)
Quarter: 2019Q1

REPORT INFORMATION
  Report Type: Spontaneous
  Country: US (occurrence: US)
  Receive Date: 20181009
  Receipt Date: 20190321
  Transmission Date: 20190417
  Serious: Yes (Hospitalization, Other)
  Sender: FDA-Public Use
  Company Number: US-GLAXOSMITHKLINE-US2018181709

PATIENT
  Sex: Female

DRUGS (2)
  1. BENLYSTA [Suspect]
     Active Substance: BELIMUMAB
     Indication: SYSTEMIC LUPUS ERYTHEMATOSUS
     Dosage: UNK UNK, CYC
     Route: 042
  2. DILANTIN [Concomitant]
     Active Substance: PHENYTOIN

REACTIONS (17)
  - Clavicle fracture [Recovered/Resolved]
  - Memory impairment [Unknown]
  - Pain [Unknown]
  - Elbow operation [Recovered/Resolved]
  - Lower limb fracture [Recovered/Resolved]
  - Limb operation [Recovered/Resolved]
  - Rehabilitation therapy [Unknown]
  - Fall [Recovered/Resolved]
  - Cough [Recovered/Resolved]
  - Upper limb fracture [Recovered/Resolved]
  - Limb immobilisation [Recovered/Resolved]
  - Pelvic fracture [Recovered/Resolved]
  - Internal fixation of fracture [Recovered/Resolved]
  - Skin laceration [Recovered/Resolved]
  - Wrist fracture [Recovered/Resolved]
  - Physiotherapy [Unknown]
  - Fatigue [Unknown]

NARRATIVE: CASE EVENT DATE: 2016
